FAERS Safety Report 4700857-0 (Version None)
Quarter: 2005Q2

REPORT INFORMATION
  Report Type: 
  Country: None (occurrence: None)
  Receive Date: 20050114
  Receipt Date: 20050114
  Transmission Date: 20051028
  Serious: No
  Sender: FDA-Public Use
  Company Number: None

PATIENT
  Age: 72 Year
  Sex: Female

DRUGS (1)
  1. RELAFEN [Suspect]
     Indication: OSTEOMYELITIS
     Dosage: 1 TAB BID PO  INDEFINITELY
     Route: 048

REACTIONS (1)
  - DRUG INEFFECTIVE [None]
